FAERS Safety Report 8593454 (Version 2)
Quarter: 2013Q2

REPORT INFORMATION
  Report Type: Spontaneous
  Country: US (occurrence: US)
  Receive Date: 20120604
  Receipt Date: 20130617
  Transmission Date: 20140414
  Serious: Yes (Disabling)
  Sender: FDA-Public Use
  Company Number: US-ASTRAZENECA-2012SE34887

PATIENT
  Age: 230 Month
  Sex: Female

DRUGS (35)
  1. NEXIUM [Suspect]
     Indication: NAUSEA
     Dosage: TWICE A DAY
     Route: 048
     Dates: start: 20091009, end: 20091114
  2. NEXIUM [Suspect]
     Indication: VOMITING
     Dosage: TWICE A DAY
     Route: 048
     Dates: start: 20091009, end: 20091114
  3. NEXIUM [Suspect]
     Indication: GASTRIC DISORDER
     Dosage: TWICE A DAY
     Route: 048
     Dates: start: 20091009, end: 20091114
  4. OMEPRAZOLE [Suspect]
     Route: 048
     Dates: start: 20091016
  5. ONDANSETRON [Concomitant]
     Dosage: ODT
     Dates: start: 20090803
  6. HYDROCODONE/APAP [Concomitant]
     Dosage: 7.5/500
  7. KLOR-CON [Concomitant]
     Dates: start: 20090815
  8. KLOR-CON [Concomitant]
     Dosage: 20 MEQ
     Dates: start: 20091016
  9. FLUOXETINE [Concomitant]
     Dates: start: 20091016
  10. METOCLOPRAMIDE [Concomitant]
     Dates: start: 20091016
  11. METOPROLOL TART [Concomitant]
     Dates: start: 20091029
  12. LISINOPRIL [Concomitant]
     Dates: start: 20091029
  13. CITALOPRAM [Concomitant]
     Dates: start: 20091029
  14. SPIRONOLACTONE [Concomitant]
     Dates: start: 20091029
  15. BROMOCRIPTIN [Concomitant]
  16. ESGIC [Concomitant]
  17. SULFATRIM/SULFATRIM DS [Concomitant]
     Dates: start: 20101025
  18. AMITRIPTYLINE [Concomitant]
     Dates: start: 20101113
  19. TRAMADOL/APAP [Concomitant]
  20. OXYCODONE/APAP [Concomitant]
  21. FOLIC ACID [Concomitant]
     Dates: start: 20110720
  22. PREDNISONE [Concomitant]
     Dates: start: 20091016
  23. MELOXICAM [Concomitant]
     Dates: start: 20091016
  24. FAMOTIDINE [Concomitant]
     Dates: start: 20091114
  25. MAG64 [Concomitant]
     Dates: start: 20091114
  26. PROPOXYPHENE/NAPS/APAP [Concomitant]
     Dates: start: 20100724
  27. ACETAMINOPHEN W/COD [Concomitant]
     Dates: start: 20101025
  28. PROMETHAZINE [Concomitant]
     Dates: start: 20101025
  29. PROMETHAZINE [Concomitant]
     Dates: start: 20130115
  30. MEDROXYPROGESTERONE IN [Concomitant]
     Dates: start: 20120312
  31. NAPROXEN SODIUM [Concomitant]
     Dates: start: 20120821
  32. CETRIZINE [Concomitant]
     Dates: start: 20120912
  33. FERROUS SULF [Concomitant]
     Dates: start: 20111121
  34. IBUPROFEN [Concomitant]
     Dates: start: 20111122
  35. MAG OXIDE [Concomitant]
     Dates: start: 20111003

REACTIONS (6)
  - Cardiac disorder [Unknown]
  - Gastric disorder [Unknown]
  - Osteoporosis [Unknown]
  - Multiple fractures [Unknown]
  - Muscle disorder [Unknown]
  - Activities of daily living impaired [Unknown]
